FAERS Safety Report 8151383-0 (Version None)
Quarter: 2012Q1

REPORT INFORMATION
  Report Type: 
  Country: None (occurrence: None)
  Receive Date: 20120220
  Receipt Date: 20120206
  Transmission Date: 20120608
  Serious: Yes (Death, Hospitalization)
  Sender: FDA-Public Use
  Company Number: JP-ROCHE-1014446

PATIENT
  Sex: Female
  Weight: 73 kg

DRUGS (6)
  1. XELODA [Suspect]
     Indication: COLON CANCER METASTATIC
     Dosage: IT IS TWO ADMINISTERING WEEKLY HOLIDAY MEDICINE FOR TWO WEEKS.
     Route: 048
     Dates: start: 20110324, end: 20110915
  2. OXALIPLATIN [Concomitant]
     Indication: COLON CANCER METASTATIC
     Dosage: DOSAGE IS UNCERTAIN.
     Route: 041
     Dates: start: 20100510, end: 20110225
  3. FLUOROURACIL [Concomitant]
     Indication: COLON CANCER METASTATIC
     Dosage: DOSAGE IS UNCERTAIN.
     Route: 040
     Dates: start: 20100510, end: 20110201
  4. AVASTIN [Suspect]
     Indication: COLON CANCER METASTATIC
     Route: 041
     Dates: start: 20100609, end: 20100806
  5. LEVOLEUCOVORIN CALCIUM [Concomitant]
     Indication: COLON CANCER METASTATIC
     Dosage: DOSAGE IS UNCERTAIN.
     Route: 041
     Dates: start: 20100510, end: 20110201
  6. FLUOROURACIL [Concomitant]
     Dosage: DOSAGE IS UNCERTAIN.
     Route: 041
     Dates: start: 20100510, end: 20110201

REACTIONS (33)
  - HYDRONEPHROSIS [None]
  - MULTI-ORGAN FAILURE [None]
  - HEPATIC FUNCTION ABNORMAL [None]
  - METASTASES TO ADRENALS [None]
  - PORTAL VEIN STENOSIS [None]
  - PYREXIA [None]
  - AUTOIMMUNE DISORDER [None]
  - ALANINE AMINOTRANSFERASE INCREASED [None]
  - ABASIA [None]
  - HAEMOGLOBIN DECREASED [None]
  - RED BLOOD CELL COUNT DECREASED [None]
  - ASCITES [None]
  - APHAGIA [None]
  - HYPERBILIRUBINAEMIA [None]
  - ASPARTATE AMINOTRANSFERASE INCREASED [None]
  - RETROPERITONEAL FIBROSIS [None]
  - CHOLANGITIS SCLEROSING [None]
  - ADRENOMEGALY [None]
  - MALAISE [None]
  - HYPERGAMMAGLOBULINAEMIA [None]
  - LYMPHOCYTE PERCENTAGE DECREASED [None]
  - METASTASES TO PERITONEUM [None]
  - CHOLANGITIS [None]
  - LYMPHADENOPATHY [None]
  - JAUNDICE [None]
  - DILATATION INTRAHEPATIC DUCT ACQUIRED [None]
  - PLEURAL EFFUSION [None]
  - GENERALISED OEDEMA [None]
  - ANTINUCLEAR ANTIBODY INCREASED [None]
  - RENAL FAILURE [None]
  - NEUTROPHIL PERCENTAGE INCREASED [None]
  - METASTASES TO LYMPH NODES [None]
  - WHITE BLOOD CELL COUNT INCREASED [None]
